FAERS Safety Report 10254605 (Version 1)
Quarter: 2014Q2

REPORT INFORMATION
  Report Type: Report from Study
  Country: BR (occurrence: BR)
  Receive Date: 20140624
  Receipt Date: 20140624
  Transmission Date: 20141212
  Serious: Yes (Disabling)
  Sender: FDA-Public Use
  Company Number: PHHY2014BR077420

PATIENT
  Sex: Female
  Weight: 79 kg

DRUGS (4)
  1. GILENYA [Suspect]
     Indication: MULTIPLE SCLEROSIS
     Dosage: 1 DF, QOD
     Route: 048
     Dates: start: 201311
  2. GILENYA [Suspect]
     Dosage: 1 DF, QD
     Route: 048
     Dates: end: 20140608
  3. COPAXONE [Suspect]
     Indication: MULTIPLE SCLEROSIS
     Dosage: 1 DF, DAILY
     Route: 048
     Dates: end: 201304
  4. PURAN T4 [Concomitant]
     Indication: THYROID DISORDER
     Dosage: 1 DF, DAILY

REACTIONS (4)
  - Dysstasia [Not Recovered/Not Resolved]
  - Fatigue [Not Recovered/Not Resolved]
  - Muscular weakness [Not Recovered/Not Resolved]
  - Diplopia [Not Recovered/Not Resolved]
